FAERS Safety Report 4358470-3 (Version None)
Quarter: 2004Q2

REPORT INFORMATION
  Report Type: 
  Country: None (occurrence: None)
  Receive Date: 20040514
  Receipt Date: 20030130
  Transmission Date: 20050107
  Serious: Yes (Other)
  Sender: FDA-Public Use
  Company Number: PHEH2003US01146

PATIENT
  Age: 47 Year
  Sex: Male

DRUGS (15)
  1. AREDIA [Suspect]
     Indication: CHRONIC MYELOID LEUKAEMIA
  2. PRILOSEC [Concomitant]
     Dosage: 20 MG, UNK
  3. PAXIL [Concomitant]
     Dosage: 20 MG, UNK
  4. FOLIC ACID [Concomitant]
     Dosage: 1 MG, UNK
  5. SPORANOX [Concomitant]
     Dosage: 100 MG, UNK
  6. FLONASE [Concomitant]
  7. CALCIUM [Concomitant]
  8. FLOVENT [Concomitant]
  9. COMBIVENT [Concomitant]
  10. SEREVENT [Concomitant]
  11. VALTREX [Concomitant]
     Dosage: 500 MG, UNK
  12. BACTRIM [Concomitant]
     Dosage: 1 TABLET TWICE DAILY ON M-W-F
  13. DIFLUCAN [Concomitant]
     Indication: SINUSITIS
     Dates: start: 20020901
  14. GLEEVEC [Concomitant]
     Indication: CHRONIC MYELOID LEUKAEMIA
  15. INTERFERON [Concomitant]
     Indication: CHRONIC MYELOID LEUKAEMIA

REACTIONS (8)
  - FISTULA [None]
  - IMPAIRED HEALING [None]
  - ORAL CANDIDIASIS [None]
  - OSTEOMYELITIS CHRONIC [None]
  - OSTEONECROSIS [None]
  - SEQUESTRECTOMY [None]
  - SINUSITIS [None]
  - TOOTH EXTRACTION [None]
